FAERS Safety Report 10951226 (Version 2)
Quarter: 2015Q1

REPORT INFORMATION
  Report Type: Spontaneous
  Country: US (occurrence: None)
  Receive Date: 20150226
  Receipt Date: 20150226
  Transmission Date: 20150721
  Serious: Yes (Hospitalization)
  Sender: FDA-Public Use
  Company Number: TAP2009Q00045

PATIENT
  Age: 24 Year
  Sex: Male
  Weight: 113.6 kg

DRUGS (5)
  1. PREVACID [Suspect]
     Active Substance: LANSOPRAZOLE
     Indication: GASTROOESOPHAGEAL REFLUX DISEASE
     Route: 048
     Dates: start: 1999, end: 2005
  2. ZANTAC [Concomitant]
     Active Substance: RANITIDINE HYDROCHLORIDE
  3. PAXIL [Concomitant]
     Active Substance: PAROXETINE HYDROCHLORIDE
  4. PROTONIX (PANTOPRAZOLE) [Concomitant]
  5. NEURONTIN [Concomitant]
     Active Substance: GABAPENTIN

REACTIONS (10)
  - Suicidal ideation [None]
  - Agitation [None]
  - Abnormal behaviour [None]
  - Anxiety [None]
  - Gastric polyps [None]
  - Depression [None]
  - Impulse-control disorder [None]
  - Mood swings [None]
  - Lethargy [None]
  - Gastrointestinal pain [None]

NARRATIVE: CASE EVENT DATE: 200007
